FAERS Safety Report 6549147-4 (Version None)
Quarter: 2010Q1

REPORT INFORMATION
  Report Type: 
  Country: None (occurrence: None)
  Receive Date: 20100119
  Receipt Date: 20100104
  Transmission Date: 20100710
  Serious: Yes (Hospitalization)
  Sender: FDA-Public Use
  Company Number: 2010SA001944

PATIENT
  Age: 55 Year
  Sex: Male

DRUGS (9)
  1. FLUDARA [Suspect]
     Indication: CHRONIC MYELOID LEUKAEMIA
  2. FLUDARA [Suspect]
     Indication: PROPHYLAXIS AGAINST GRAFT VERSUS HOST DISEASE
  3. CAMPATH [Suspect]
     Indication: CHRONIC MYELOID LEUKAEMIA
     Dosage: 10 MILLIGRAM(S);DAILY
  4. CAMPATH [Suspect]
     Indication: PROPHYLAXIS AGAINST GRAFT VERSUS HOST DISEASE
     Dosage: 10 MILLIGRAM(S);DAILY
  5. MELPHALAN HYDROCHLORIDE [Suspect]
     Indication: CHRONIC MYELOID LEUKAEMIA
  6. MELPHALAN HYDROCHLORIDE [Suspect]
     Indication: PROPHYLAXIS AGAINST GRAFT VERSUS HOST DISEASE
  7. CYCLOSPORINE [Suspect]
     Indication: PROPHYLAXIS AGAINST GRAFT VERSUS HOST DISEASE
  8. CON MEDS [Concomitant]
  9. PREV MEDS [Concomitant]

REACTIONS (3)
  - EPSTEIN-BARR VIRUS ASSOCIATED LYMPHOPROLIFERATIVE DISORDER [None]
  - EPSTEIN-BARR VIRUS INFECTION [None]
  - TONSILLITIS [None]
